FAERS Safety Report 5127490-3 (Version None)
Quarter: 2006Q4

REPORT INFORMATION
  Report Type: 
  Country: None (occurrence: None)
  Receive Date: 20061010
  Receipt Date: 20060926
  Transmission Date: 20070319
  Serious: Yes (Life-Threatening, Hospitalization, Other)
  Sender: FDA-Public Use
  Company Number: 2006106390

PATIENT
  Age: 73 Year
  Sex: Male
  Weight: 59 kg

DRUGS (3)
  1. LIPITOR [Suspect]
     Indication: HYPERLIPIDAEMIA
     Dosage: 10 MG (10 MG, 1 IN 1 D); ORAL
     Route: 048
     Dates: start: 20010824, end: 20060217
  2. INDAPAMIDE [Suspect]
     Indication: HYPERTENSION
     Dosage: 1.5 MG (1.5 MG, 1 IN 1 D); ORAL
     Route: 048
     Dates: start: 20030811, end: 20060327
  3. AMIODARONE HCL [Suspect]
     Indication: ARRHYTHMIA
     Dosage: 200 MG (200 MG, 1 IN 1 D); ORAL
     Route: 048
     Dates: start: 20041008, end: 20060327

REACTIONS (4)
  - ARRHYTHMIA [None]
  - CHOLESTASIS [None]
  - HEPATITIS [None]
  - HYPERTENSION [None]
